FAERS Safety Report 23864171 (Version 1)
Quarter: 2024Q2

REPORT INFORMATION
  Report Type: Spontaneous
  Country: PT (occurrence: PT)
  Receive Date: 20240516
  Receipt Date: 20240516
  Transmission Date: 20240716
  Serious: Yes (Hospitalization, Other)
  Sender: FDA-Public Use
  Company Number: PT-TEVA-VS-3197615

PATIENT
  Age: 43 Year
  Sex: Male

DRUGS (2)
  1. TESTOSTERONE [Suspect]
     Active Substance: TESTOSTERONE
     Indication: Drug abuse
     Dosage: FOR MORE THAN 20 YEARS
     Route: 065
  2. NANDROLONE [Suspect]
     Active Substance: NANDROLONE
     Indication: Drug abuse
     Dosage: FOR MORE THAN 20 YEARS
     Route: 030

REACTIONS (5)
  - Drug abuse [Unknown]
  - Acute myocardial infarction [Recovered/Resolved]
  - Ventricular dysfunction [Unknown]
  - Acute coronary syndrome [Recovered/Resolved]
  - Cardiomyopathy [Unknown]
